FAERS Safety Report 5309681-1 (Version None)
Quarter: 2007Q2

REPORT INFORMATION
  Report Type: 
  Country: None (occurrence: None)
  Receive Date: 20070427
  Receipt Date: 20061208
  Transmission Date: 20071010
  Serious: No
  Sender: FDA-Public Use
  Company Number: US-GLAXOSMITHKLINE-A0630768A

PATIENT
  Sex: Female

DRUGS (3)
  1. DEXEDRINE [Suspect]
     Indication: CHRONIC FATIGUE SYNDROME
     Dosage: 10MG PER DAY
     Route: 048
  2. DEXTROSTAT [Suspect]
     Indication: CHRONIC FATIGUE SYNDROME
     Dosage: 5MG VARIABLE DOSE
     Route: 048
  3. ESTROGENS SOL/INJ [Concomitant]

REACTIONS (3)
  - ANXIETY [None]
  - DRUG INEFFECTIVE [None]
  - INSOMNIA [None]
